FAERS Safety Report 5868562-5 (Version None)
Quarter: 2008Q3

REPORT INFORMATION
  Report Type: 
  Country: None (occurrence: None)
  Receive Date: 20080902
  Receipt Date: 20080902
  Transmission Date: 20090109
  Serious: No
  Sender: FDA-Public Use
  Company Number: None

PATIENT
  Age: 24 Year
  Sex: Female
  Weight: 136.0791 kg

DRUGS (2)
  1. EFFEXOR XR [Suspect]
     Indication: ANXIETY
     Dosage: 75MG ONCE A DAY PO
     Route: 048
     Dates: start: 20050326, end: 20080728
  2. EFFEXOR XR [Suspect]
     Indication: ANXIETY
     Dosage: 37.5MG ONCE A DAY PO  (DURATION: STILL TAPERING)
     Route: 048

REACTIONS (13)
  - ANXIETY [None]
  - BLOOD PRESSURE INCREASED [None]
  - CONDITION AGGRAVATED [None]
  - DIARRHOEA [None]
  - FEELING ABNORMAL [None]
  - GASTROOESOPHAGEAL REFLUX DISEASE [None]
  - INSOMNIA [None]
  - NAUSEA [None]
  - PALPITATIONS [None]
  - TREMOR [None]
  - VERTIGO [None]
  - VOMITING [None]
  - WITHDRAWAL SYNDROME [None]
